FAERS Safety Report 9671823 (Version 1)
Quarter: 2013Q4

REPORT INFORMATION
  Report Type: Spontaneous
  Country: CO (occurrence: CO)
  Receive Date: 20131106
  Receipt Date: 20131106
  Transmission Date: 20140711
  Serious: Yes (Hospitalization)
  Sender: FDA-Public Use
  Company Number: CO-BAYER-2013-134864

PATIENT
  Age: 25 Year
  Sex: Female
  Weight: 65 kg

DRUGS (1)
  1. ULTRAVIST? 300 [Suspect]
     Indication: UROGRAM
     Dosage: UNK
     Dates: start: 20131101, end: 20131101

REACTIONS (3)
  - Dysaesthesia [Recovered/Resolved]
  - Chest discomfort [Recovered/Resolved]
  - Respiratory distress [Recovered/Resolved]
